FAERS Safety Report 5255479-2 (Version None)
Quarter: 2007Q1

REPORT INFORMATION
  Report Type: 
  Country: None (occurrence: None)
  Receive Date: 20070305
  Receipt Date: 20070220
  Transmission Date: 20070707
  Serious: Yes (Other)
  Sender: FDA-Public Use
  Company Number: GB-SOLVAY-00207000614

PATIENT
  Age: 76 Year
  Sex: Male

DRUGS (1)
  1. PERINDOPRIL ERBUMINE [Suspect]
     Indication: HYPERTENSION
     Dosage: DAILY DOSE: 4 MILLIGRAM(S)
     Route: 048
     Dates: start: 20050603

REACTIONS (4)
  - ANAEMIA [None]
  - METASTASES TO BONE MARROW [None]
  - NEUTROPENIA [None]
  - PROSTATE CANCER [None]
